FAERS Safety Report 7251762-X (Version None)
Quarter: 2011Q1

REPORT INFORMATION
  Report Type: 
  Country: None (occurrence: None)
  Receive Date: 20110128
  Receipt Date: 20110121
  Transmission Date: 20110831
  Serious: Yes (Hospitalization, Other)
  Sender: FDA-Public Use
  Company Number: US-US-EMD SERONO, INC.-231875J09USA

PATIENT
  Sex: Female

DRUGS (5)
  1. REBIF [Suspect]
     Dates: start: 20101122, end: 20101224
  2. REBIF [Suspect]
     Route: 058
     Dates: start: 20100317, end: 20100801
  3. NARCOTIC MEDICATIONS [Concomitant]
  4. UNSPECIFIED MEDICATIONS [Concomitant]
  5. REBIF [Suspect]
     Indication: MULTIPLE SCLEROSIS
     Route: 058
     Dates: start: 20090622, end: 20091001

REACTIONS (17)
  - ANAEMIA [None]
  - ABDOMINAL DISTENSION [None]
  - DYSPNOEA [None]
  - SWOLLEN TONGUE [None]
  - SKIN ULCER [None]
  - GASTROINTESTINAL INFECTION [None]
  - WEIGHT DECREASED [None]
  - FALL [None]
  - CONSTIPATION [None]
  - FAECALOMA [None]
  - STOMATITIS [None]
  - INJECTION SITE REACTION [None]
  - CONVULSION [None]
  - WEIGHT INCREASED [None]
  - HEADACHE [None]
  - INFLUENZA [None]
  - PAIN [None]
